FAERS Safety Report 26153268 (Version 2)
Quarter: 2025Q4

REPORT INFORMATION
  Report Type: Report from Study
  Country: US (occurrence: US)
  Receive Date: 20251214
  Receipt Date: 20251216
  Transmission Date: 20260118
  Serious: Yes (Hospitalization, Other)
  Sender: ABBVIE
  Company Number: US-ABBVIE-6588890

PATIENT
  Age: 56 Year
  Sex: Female

DRUGS (1)
  1. RINVOQ [Suspect]
     Active Substance: UPADACITINIB
     Indication: Rheumatoid arthritis
     Dosage: STRENGTH 15 MG
     Route: 048
     Dates: start: 20250521

REACTIONS (7)
  - Cerebral haemorrhage [Unknown]
  - Musculoskeletal stiffness [Unknown]
  - Hyperacusis [Not Recovered/Not Resolved]
  - Gait disturbance [Unknown]
  - Cerebrovascular accident [Recovering/Resolving]
  - Migraine [Not Recovered/Not Resolved]
  - Photophobia [Unknown]

NARRATIVE: CASE EVENT DATE: 20250101
